FAERS Safety Report 10210839 (Version 2)
Quarter: 2014Q2

REPORT INFORMATION
  Report Type: Report from Study
  Country: DE (occurrence: DE)
  Receive Date: 20140602
  Receipt Date: 20140605
  Transmission Date: 20141212
  Serious: Yes (Hospitalization)
  Sender: FDA-Public Use
  Company Number: DE-GLAXOSMITHKLINE-B0998198A

PATIENT
  Age: 65 Year
  Sex: Female

DRUGS (8)
  1. OFATUMUMAB [Suspect]
     Indication: CHRONIC LYMPHOCYTIC LEUKAEMIA
     Route: 042
     Dates: start: 20140508, end: 20140522
  2. L-THYROXIN [Concomitant]
     Dosage: 75UG PER DAY
  3. RAMIPRIL [Concomitant]
     Dosage: 2.5MG PER DAY
  4. METFORMIN [Concomitant]
     Dosage: 1000MG PER DAY
  5. PANTOPRAZOL [Concomitant]
     Dosage: 20MG PER DAY
  6. TRAMADOL [Concomitant]
     Dosage: 100MG PER DAY
  7. CALCIUM D3 [Concomitant]
  8. NOVALGIN [Concomitant]

REACTIONS (1)
  - Sinus tachycardia [Recovered/Resolved]
